FAERS Safety Report 16971469 (Version 4)
Quarter: 2019Q4

REPORT INFORMATION
  Report Type: Spontaneous
  Country: US (occurrence: US)
  Receive Date: 20191029
  Receipt Date: 20191231
  Transmission Date: 20200122
  Serious: Yes (Other)
  Sender: FDA-Public Use
  Company Number: US-SHIRE-US201936472

PATIENT
  Age: 1 Year

DRUGS (2)
  1. ADYNOVATE [Suspect]
     Active Substance: ANTIHEMOPHILIC FACTOR, HUMAN RECOMBINANT
     Indication: PRODUCT USED FOR UNKNOWN INDICATION
     Dosage: 733 INTERNATIONAL UNIT
     Route: 042
  2. ADYNOVATE [Suspect]
     Active Substance: ANTIHEMOPHILIC FACTOR, HUMAN RECOMBINANT
     Dosage: 750 INTERNATIONAL UNIT
     Route: 042

REACTIONS (8)
  - Bronchitis [Recovered/Resolved]
  - Influenza [Recovered/Resolved]
  - Haemarthrosis [Recovered/Resolved]
  - Ear infection [Recovered/Resolved]
  - Poor venous access [Recovered/Resolved]
  - Respiratory syncytial virus infection [Recovered/Resolved]
  - Joint swelling [Recovered/Resolved]
  - Head injury [Recovered/Resolved]

NARRATIVE: CASE EVENT DATE: 20191016
